FAERS Safety Report 7699553-X (Version None)
Quarter: 2011Q3

REPORT INFORMATION
  Report Type: 
  Country: None (occurrence: None)
  Receive Date: 20110822
  Receipt Date: 20110815
  Transmission Date: 20111222
  Serious: Yes (Other)
  Sender: FDA-Public Use
  Company Number: BR-BRISTOL-MYERS SQUIBB COMPANY-15981798

PATIENT
  Age: 57 Year
  Sex: Female
  Weight: 80 kg

DRUGS (2)
  1. LEVOTHYROXINE SODIUM [Concomitant]
     Indication: HYPOTHYROIDISM
     Dosage: EUTHYROX 75MG TABS,1 TABLET START 8 YRS AGO
  2. IRBESARTAN [Suspect]
     Indication: HYPERTENSION
     Dates: start: 20090101

REACTIONS (3)
  - BURSITIS [None]
  - FALL [None]
  - TENDON RUPTURE [None]
